FAERS Safety Report 13337921 (Version 1)
Quarter: 2017Q1

REPORT INFORMATION
  Report Type: Spontaneous
  Country: US (occurrence: US)
  Receive Date: 20170315
  Receipt Date: 20170315
  Transmission Date: 20170428
  Serious: Yes (Hospitalization, Other)
  Sender: FDA-Public Use
  Company Number: US-ELI_LILLY_AND_COMPANY-US201608001840

PATIENT
  Age: 61 Year
  Sex: Male

DRUGS (2)
  1. CYMBALTA [Suspect]
     Active Substance: DULOXETINE HYDROCHLORIDE
     Dosage: 30 MG, QD
     Route: 048
     Dates: end: 201512
  2. CYMBALTA [Suspect]
     Active Substance: DULOXETINE HYDROCHLORIDE
     Indication: PRODUCT USED FOR UNKNOWN INDICATION
     Dosage: UNK, UNKNOWN
     Route: 048

REACTIONS (16)
  - Loss of consciousness [Unknown]
  - Hallucination [Unknown]
  - Anxiety [Unknown]
  - Nausea [Unknown]
  - Headache [Unknown]
  - Metabolic encephalopathy [Unknown]
  - Dysphoria [Unknown]
  - Hypomania [Unknown]
  - Syncope [Unknown]
  - Sensory disturbance [Unknown]
  - Dizziness [Unknown]
  - Fall [Unknown]
  - Confusional state [Unknown]
  - Disturbance in attention [Unknown]
  - Drug withdrawal syndrome [Unknown]
  - Vomiting [Unknown]

NARRATIVE: CASE EVENT DATE: 20151204
